FAERS Safety Report 20975039 (Version 2)
Quarter: 2022Q2

REPORT INFORMATION
  Report Type: Report from Study
  Country: GH (occurrence: GH)
  Receive Date: 20220617
  Receipt Date: 20220623
  Transmission Date: 20220720
  Serious: Yes (Life-Threatening, Hospitalization)
  Sender: FDA-Public Use
  Company Number: GH-NOVARTISPH-NVSC2022GH131428

PATIENT
  Age: 19 Year
  Sex: Female
  Weight: 47 kg

DRUGS (9)
  1. CRIZANLIZUMAB [Suspect]
     Active Substance: CRIZANLIZUMAB
     Indication: Sickle cell disease
     Dosage: 7.5 MG/KG
     Route: 042
     Dates: start: 20210622
  2. CLINDAMYCIN [Concomitant]
     Active Substance: CLINDAMYCIN
     Indication: Osteomyelitis
     Dosage: UNK
     Route: 065
     Dates: start: 20220610
  3. FOLIC ACID [Concomitant]
     Active Substance: FOLIC ACID
     Indication: General physical condition
     Dosage: UNK
     Route: 065
     Dates: start: 20081014
  4. ZINCOVIT [Concomitant]
     Indication: General physical condition
     Dosage: UNK
     Route: 065
     Dates: start: 20081014
  5. TRAMADOL [Concomitant]
     Active Substance: TRAMADOL
     Indication: Sickle cell anaemia with crisis
     Dosage: UNK
     Route: 065
     Dates: start: 20220510
  6. ACETAMINOPHEN [Concomitant]
     Active Substance: ACETAMINOPHEN
     Indication: Sickle cell anaemia with crisis
     Dosage: UNK
     Route: 065
     Dates: start: 20220510
  7. ACETAMINOPHEN [Concomitant]
     Active Substance: ACETAMINOPHEN
     Dosage: UNK
     Route: 065
     Dates: start: 20220605
  8. MORPHINE [Concomitant]
     Active Substance: MORPHINE
     Indication: Sickle cell anaemia with crisis
     Dosage: UNK
     Route: 065
     Dates: start: 20220605
  9. ENOXAPARIN [Concomitant]
     Active Substance: ENOXAPARIN
     Indication: Thrombosis prophylaxis
     Dosage: UNK
     Route: 065
     Dates: start: 20220605

REACTIONS (2)
  - Anaemia [Recovered/Resolved]
  - Pneumonia [Not Recovered/Not Resolved]

NARRATIVE: CASE EVENT DATE: 20220605
